FAERS Safety Report 11483755 (Version 1)
Quarter: 2015Q3

REPORT INFORMATION
  Report Type: Spontaneous
  Country: US (occurrence: US)
  Receive Date: 20150909
  Receipt Date: 20150909
  Transmission Date: 20151125
  Serious: No
  Sender: FDA-Public Use
  Company Number: US-JAZZ-2015-US-001575

PATIENT
  Age: 67 Year
  Sex: Female
  Weight: 61.22 kg

DRUGS (2)
  1. XYREM [Suspect]
     Active Substance: SODIUM OXYBATE
     Indication: CATAPLEXY
  2. XYREM [Suspect]
     Active Substance: SODIUM OXYBATE
     Indication: NARCOLEPSY
     Dosage: 3 G, BID
     Route: 048
     Dates: start: 20150124

REACTIONS (6)
  - Hunger [Not Recovered/Not Resolved]
  - Abnormal dreams [Unknown]
  - Dizziness [Recovered/Resolved]
  - Retching [Recovered/Resolved]
  - Food craving [Unknown]
  - Nausea [Recovered/Resolved]

NARRATIVE: CASE EVENT DATE: 20150125
